FAERS Safety Report 8282312-7 (Version None)
Quarter: 2012Q2

REPORT INFORMATION
  Report Type: 
  Country: None (occurrence: None)
  Receive Date: 20120413
  Receipt Date: 20120413
  Transmission Date: 20120825
  Serious: Yes (Other)
  Sender: FDA-Public Use
  Company Number: None

PATIENT
  Age: 54 Year
  Sex: Female
  Weight: 82.553 kg

DRUGS (2)
  1. LISTERINE WHITNING PREBRUSH RINS [Suspect]
     Indication: DENTAL PLAQUE
     Dosage: 3 TSP FULL
     Route: 048
     Dates: start: 20111001, end: 20120330
  2. LISTERINE WHITNING PREBRUSH RINS [Suspect]
     Indication: TOOTH DEPOSIT
     Dosage: 3 TSP FULL
     Route: 048
     Dates: start: 20111001, end: 20120330

REACTIONS (1)
  - TOOTH DISORDER [None]
